FAERS Safety Report 6781521-3 (Version None)
Quarter: 2010Q2

REPORT INFORMATION
  Report Type: 
  Country: None (occurrence: None)
  Receive Date: 20100621
  Receipt Date: 20100617
  Transmission Date: 20101027
  Serious: Yes (Life-Threatening, Hospitalization)
  Sender: FDA-Public Use
  Company Number: ES-ROCHE-706222

PATIENT
  Sex: Female
  Weight: 70 kg

DRUGS (10)
  1. TRASTUZUMAB [Suspect]
     Indication: BREAST CANCER
     Dosage: LOADING DOSE.
     Route: 042
     Dates: start: 20090520
  2. TRASTUZUMAB [Suspect]
     Dosage: MAINTENENCE DOSE, FORM: VIAL; LAST DOSE BEFORE EVENT: 24 SEPTEMBER 2009.
     Route: 042
     Dates: start: 20090610, end: 20090903
  3. DOCETAXEL [Suspect]
     Indication: BREAST CANCER
     Dosage: LAST DOSE BEFRE EVENT:3 SEP 09;FORM:VIAL
     Route: 042
     Dates: start: 20090520, end: 20090903
  4. CARBOPLATIN [Suspect]
     Indication: BREAST CANCER
     Dosage: FORM:VIAL;LAST DOSE BEFRE EVENT:3 SEP 09
     Route: 042
     Dates: start: 20090520, end: 20090903
  5. ALPRAZOLAM [Concomitant]
     Indication: ANXIETY
     Dates: start: 20090610
  6. NAPROXENO [Concomitant]
     Indication: PAIN
     Dates: start: 20090903
  7. CANDESARTAN [Concomitant]
     Indication: HYPERTENSION
     Dates: start: 20100304
  8. ESPIRONOLACTONA [Concomitant]
     Indication: HYPERTENSION
     Dates: start: 20100304
  9. DIGOXIN [Concomitant]
     Indication: ARRHYTHMIA PROPHYLAXIS
     Dates: start: 20100304
  10. CARVEDILOL [Concomitant]
     Indication: HYPERTENSION
     Dates: start: 20100304

REACTIONS (1)
  - ISCHAEMIC STROKE [None]
